FAERS Safety Report 13200535 (Version 2)
Quarter: 2021Q1

REPORT INFORMATION
  Report Type: Report from Study
  Country: CA (occurrence: CA)
  Receive Date: 20170208
  Receipt Date: 20210210
  Transmission Date: 20210419
  Serious: Yes (Hospitalization)
  Sender: FDA-Public Use
  Company Number: CA-BIOGEN-2017BI00354678

PATIENT
  Age: 45 Year
  Sex: Female

DRUGS (2)
  1. FAMPYRA [Suspect]
     Active Substance: DALFAMPRIDINE
     Indication: GAIT DISTURBANCE
     Route: 048
     Dates: start: 20150224
  2. FAMPYRA [Suspect]
     Active Substance: DALFAMPRIDINE
     Route: 048
     Dates: start: 20150225

REACTIONS (2)
  - Complication associated with device [Unknown]
  - Ankle fracture [Recovered/Resolved]

NARRATIVE: CASE EVENT DATE: 20161112
